FAERS Safety Report 4903432-8 (Version None)
Quarter: 2006Q1

REPORT INFORMATION
  Report Type: 
  Country: None (occurrence: None)
  Receive Date: 20060203
  Receipt Date: 20060119
  Transmission Date: 20060701
  Serious: Yes (Death, Hospitalization)
  Sender: FDA-Public Use
  Company Number: 060119-0000118

PATIENT
  Age: 22 Year
  Sex: Female

DRUGS (5)
  1. URBANYL (CLOBAZAM) [Suspect]
     Indication: DEPRESSION
     Dosage: 20 MG; QD; PO
     Route: 048
     Dates: start: 20050225, end: 20050313
  2. TRANXENE [Suspect]
     Indication: DEPRESSION
     Dosage: 20 MG; QD; PO
     Route: 048
     Dates: start: 20050225, end: 20050313
  3. MEPRONIZINE (MEPRONIZINE) [Suspect]
     Indication: DEPRESSION
     Dosage: 410 MG; QD; PO
     Route: 048
     Dates: start: 20050225, end: 20050313
  4. NOCTRAN [Suspect]
     Indication: DEPRESSION
     Dosage: 10 MG; QD; PO
     Route: 048
     Dates: start: 20050225, end: 20050313
  5. NORSET [Concomitant]

REACTIONS (6)
  - ACUTE RESPIRATORY DISTRESS SYNDROME [None]
  - COMA [None]
  - DRUG TOXICITY [None]
  - HYPOXIA [None]
  - PANCYTOPENIA [None]
  - SELF-INDUCED VOMITING [None]
